FAERS Safety Report 6653454-4 (Version None)
Quarter: 2010Q1

REPORT INFORMATION
  Report Type: 
  Country: None (occurrence: None)
  Receive Date: 20100326
  Receipt Date: 20100323
  Transmission Date: 20100710
  Serious: Yes (Other)
  Sender: FDA-Public Use
  Company Number: PHEH2010US03273

PATIENT
  Sex: Female

DRUGS (27)
  1. RECLAST [Suspect]
     Dosage: UNK
     Dates: start: 20100322
  2. METFORMIN HYDROCHLORIDE [Concomitant]
  3. TOPROL-XL [Concomitant]
  4. LUNESTA [Concomitant]
  5. LIPITOR [Concomitant]
  6. LYRICA [Concomitant]
  7. NEXIUM [Concomitant]
  8. SINGULAIR [Concomitant]
  9. AMITRIPTYLINE HCL [Concomitant]
  10. SPIRIVA [Concomitant]
  11. NIACIN [Concomitant]
  12. ADVAIR DISKUS 100/50 [Concomitant]
  13. DYAZIDE [Concomitant]
  14. LUTEINE [Concomitant]
  15. FISH OIL [Concomitant]
  16. EFFEXOR [Concomitant]
  17. THEOPHYLLINE [Concomitant]
  18. MULTIVIT [Concomitant]
  19. CALCIUM WITH VITAMIN D [Concomitant]
  20. ASPIRIN [Concomitant]
  21. TRAVATAN [Concomitant]
  22. ATIVAN [Concomitant]
  23. ALBUTEROL [Concomitant]
  24. PROVENTIL [Concomitant]
  25. IBUPROFEN [Concomitant]
  26. GLIPIZIDE [Concomitant]
  27. DARVOCET-N 100 [Concomitant]

REACTIONS (1)
  - BLOOD GLUCOSE DECREASED [None]
